FAERS Safety Report 17699720 (Version 1)
Quarter: 2020Q2

REPORT INFORMATION
  Report Type: Report from Study
  Country: GB (occurrence: GB)
  Receive Date: 20200423
  Receipt Date: 20200423
  Transmission Date: 20200714
  Serious: Yes (Hospitalization, Other)
  Sender: FDA-Public Use
  Company Number: GB-JNJFOC-20190706232

PATIENT
  Age: 34 Year
  Sex: Female

DRUGS (9)
  1. OMEPRAZOLE. [Concomitant]
     Active Substance: OMEPRAZOLE
     Indication: ILEOSTOMY
  2. CALCIUM + VITAMIN D3 [Concomitant]
     Active Substance: CALCIUM CARBONATE\CHOLECALCIFEROL
     Indication: MALABSORPTION
     Route: 048
  3. LOPERAMIDE [Concomitant]
     Active Substance: LOPERAMIDE
     Indication: DIARRHOEA
     Route: 048
  4. HYDROCORTISONE. [Suspect]
     Active Substance: HYDROCORTISONE
     Indication: ADDISON^S DISEASE
     Route: 065
  5. METHOTREXATE. [Concomitant]
     Active Substance: METHOTREXATE
     Route: 048
  6. CODEINE [Concomitant]
     Active Substance: CODEINE
     Indication: RHINORRHOEA
  7. STELARA [Suspect]
     Active Substance: USTEKINUMAB
     Dosage: PRE-FILLED SYRINGE
     Route: 058
     Dates: start: 20190730
  8. STELARA [Suspect]
     Active Substance: USTEKINUMAB
     Indication: CROHN^S DISEASE
     Dosage: PRE-FILLED SYRINGE
     Route: 058
     Dates: start: 2017
  9. STELARA [Suspect]
     Active Substance: USTEKINUMAB
     Dosage: PRE-FILLED SYRINGE
     Route: 058

REACTIONS (4)
  - Sepsis [Unknown]
  - Substance-induced psychotic disorder [Unknown]
  - Anastomotic leak [Recovered/Resolved]
  - Crohn^s disease [Unknown]

NARRATIVE: CASE EVENT DATE: 20190625
